FAERS Safety Report 4656952-8 (Version None)
Quarter: 2005Q2

REPORT INFORMATION
  Report Type: 
  Country: None (occurrence: None)
  Receive Date: 20050509
  Receipt Date: 20040930
  Transmission Date: 20051028
  Serious: Yes (Death, Hospitalization)
  Sender: FDA-Public Use
  Company Number: US-MERCK-0410USA04080

PATIENT
  Age: 56 Year

DRUGS (3)
  1. PRINIVIL [Suspect]
     Route: 048
  2. ISOSORBIDE DINITRATE [Suspect]
     Route: 065
  3. ATENOLOL [Suspect]
     Route: 048

REACTIONS (3)
  - CARDIAC ARREST [None]
  - COMPLETED SUICIDE [None]
  - RESPIRATORY ARREST [None]
